FAERS Safety Report 22033992 (Version 1)
Quarter: 2023Q1

REPORT INFORMATION
  Report Type: Spontaneous
  Country: CN (occurrence: CN)
  Receive Date: 20230224
  Receipt Date: 20230224
  Transmission Date: 20230418
  Serious: Yes (Other)
  Sender: FDA-Public Use
  Company Number: CN-002147023-NVSC2023CN038830

PATIENT
  Age: 76 Year
  Sex: Male
  Weight: 55 kg

DRUGS (1)
  1. VORICONAZOLE [Suspect]
     Active Substance: VORICONAZOLE
     Indication: Antifungal treatment
     Dosage: 0.20 G, BID
     Route: 048
     Dates: start: 20230124, end: 20230201

REACTIONS (3)
  - Hallucination [Recovering/Resolving]
  - Mental disorder [Recovering/Resolving]
  - Disorganised speech [Unknown]

NARRATIVE: CASE EVENT DATE: 20230201
